FAERS Safety Report 25256378 (Version 2)
Quarter: 2025Q2

REPORT INFORMATION
  Report Type: Report from Study
  Country: CA (occurrence: CA)
  Receive Date: 20250430
  Receipt Date: 20250522
  Transmission Date: 20250716
  Serious: Yes (Hospitalization, Other)
  Sender: ABBVIE
  Company Number: CA-ABBVIE-6256072

PATIENT
  Sex: Female

DRUGS (1)
  1. RINVOQ [Suspect]
     Active Substance: UPADACITINIB
     Indication: Crohn^s disease
     Dosage: FORM STRENGTH 30 MG
     Route: 048
     Dates: start: 20240108

REACTIONS (4)
  - Intestinal obstruction [Unknown]
  - Post-traumatic neck syndrome [Unknown]
  - Wrist fracture [Unknown]
  - Road traffic accident [Unknown]
